FAERS Safety Report 5847107-X (Version None)
Quarter: 2008Q3

REPORT INFORMATION
  Report Type: 
  Country: None (occurrence: None)
  Receive Date: 20080815
  Receipt Date: 20080805
  Transmission Date: 20090109
  Serious: Yes (Other)
  Sender: FDA-Public Use
  Company Number: DE-ABBOTT-08P-062-0469331-00

PATIENT
  Age: 30 Year
  Sex: Female

DRUGS (6)
  1. NORVIR [Suspect]
     Indication: ANTIVIRAL PROPHYLAXIS
     Dates: start: 20060925
  2. EFAVIRENZ [Suspect]
     Indication: HIV INFECTION
     Dosage: 6000 MG DAILY
     Route: 048
     Dates: start: 20050101, end: 20060925
  3. SAQUINAVIR [Suspect]
     Indication: ANTIVIRAL PROPHYLAXIS
     Dosage: 2X2
     Route: 048
     Dates: start: 20060925
  4. LAMIVUDINE + ZIDOVUDINE [Suspect]
     Indication: ANTIVIRAL PROPHYLAXIS
     Dates: start: 20040428
  5. VALGANCICLOVIR HCL [Suspect]
     Indication: CYTOMEGALOVIRUS CHORIORETINITIS
     Dosage: DAILY
     Route: 048
     Dates: start: 20040101, end: 20060925
  6. BACTRIM [Concomitant]
     Indication: DRUG USE FOR UNKNOWN INDICATION

REACTIONS (3)
  - COMPLICATION OF PREGNANCY [None]
  - PREMATURE LABOUR [None]
  - PREMATURE RUPTURE OF MEMBRANES [None]
